FAERS Safety Report 15418077 (Version 3)
Quarter: 2019Q2

REPORT INFORMATION
  Report Type: Spontaneous
  Country: JP (occurrence: JP)
  Receive Date: 20180924
  Receipt Date: 20190628
  Transmission Date: 20190711
  Serious: Yes (Other)
  Sender: FDA-Public Use
  Company Number: JP-BRISTOL-MYERS SQUIBB COMPANY-BMS-2018-086845

PATIENT
  Age: 77 Year
  Sex: Male

DRUGS (1)
  1. KENACORT-A [Suspect]
     Active Substance: TRIAMCINOLONE
     Indication: MACULAR OEDEMA
     Route: 065

REACTIONS (2)
  - Intentional product use issue [Unknown]
  - Eye infection syphilitic [Unknown]
